FAERS Safety Report 7520531-5 (Version None)
Quarter: 2011Q2

REPORT INFORMATION
  Report Type: 
  Country: None (occurrence: None)
  Receive Date: 20110602
  Receipt Date: 20110519
  Transmission Date: 20111010
  Serious: Yes (Death)
  Sender: FDA-Public Use
  Company Number: US-ELI_LILLY_AND_COMPANY-US201105005948

PATIENT
  Sex: Male

DRUGS (1)
  1. FORTEO [Suspect]
     Dosage: 20 UG, UNKNOWN
     Route: 065

REACTIONS (1)
  - DEATH [None]
